FAERS Safety Report 23229429 (Version 2)
Quarter: 2024Q1

REPORT INFORMATION
  Report Type: Spontaneous
  Country: CN (occurrence: CN)
  Receive Date: 20231127
  Receipt Date: 20240108
  Transmission Date: 20240410
  Serious: Yes (Other)
  Sender: FDA-Public Use
  Company Number: CN-BAUSCH-BL-2023-017332

PATIENT
  Age: 65 Year
  Sex: Female

DRUGS (8)
  1. DEXAMETHASONE [Suspect]
     Active Substance: DEXAMETHASONE
     Indication: Myeloproliferative neoplasm
     Route: 065
  2. DEXAMETHASONE [Suspect]
     Active Substance: DEXAMETHASONE
     Indication: Precursor T-lymphoblastic lymphoma/leukaemia
  3. CYCLOPHOSPHAMIDE [Suspect]
     Active Substance: CYCLOPHOSPHAMIDE
     Indication: Myeloproliferative neoplasm
     Route: 065
  4. CYCLOPHOSPHAMIDE [Suspect]
     Active Substance: CYCLOPHOSPHAMIDE
     Indication: Precursor T-lymphoblastic lymphoma/leukaemia
  5. DOXORUBICIN HYDROCHLORIDE [Suspect]
     Active Substance: DOXORUBICIN HYDROCHLORIDE
     Indication: Myeloproliferative neoplasm
     Route: 065
  6. DOXORUBICIN HYDROCHLORIDE [Suspect]
     Active Substance: DOXORUBICIN HYDROCHLORIDE
     Indication: Precursor T-lymphoblastic lymphoma/leukaemia
  7. VINDESINE [Suspect]
     Active Substance: VINDESINE
     Indication: Myeloproliferative neoplasm
     Route: 065
  8. VINDESINE [Suspect]
     Active Substance: VINDESINE
     Indication: Precursor T-lymphoblastic lymphoma/leukaemia

REACTIONS (2)
  - Myelosuppression [Unknown]
  - Pneumonia [Unknown]
